FAERS Safety Report 10015470 (Version 2)
Quarter: 2014Q2

REPORT INFORMATION
  Report Type: Report from Study
  Country: US (occurrence: US)
  Receive Date: 20140317
  Receipt Date: 20140606
  Transmission Date: 20141212
  Serious: Yes (Hospitalization)
  Sender: FDA-Public Use
  Company Number: US-ASTRAZENECA-2014SE16479

PATIENT
  Age: 75 Year
  Sex: Female
  Weight: 84.4 kg

DRUGS (22)
  1. PRILOSEC [Suspect]
     Indication: GASTROOESOPHAGEAL REFLUX DISEASE
     Route: 048
  2. PRILOSEC [Suspect]
     Indication: GASTROOESOPHAGEAL REFLUX DISEASE
     Route: 048
  3. LISPINOPRIL [Suspect]
     Indication: BLOOD PRESSURE ABNORMAL
     Route: 048
  4. SYMBICORT [Suspect]
     Indication: CHRONIC OBSTRUCTIVE PULMONARY DISEASE
     Dosage: 160/4.5 UG 2 PUFFS BID
     Route: 055
     Dates: start: 2013
  5. SYNTHROID [Concomitant]
     Indication: THYROID DISORDER
  6. OXYGEN [Concomitant]
  7. BUSPAR [Concomitant]
  8. FUROSEMIDE [Concomitant]
  9. COMBIVENT [Concomitant]
  10. LEVOTHYROXINE [Concomitant]
  11. MEVACOR [Concomitant]
  12. SINGULAIR [Concomitant]
  13. NITROGLYCERIN [Concomitant]
     Indication: CHEST PAIN
  14. POTASSIUM CHLORIDE [Concomitant]
  15. PREDNISOLONE [Concomitant]
  16. UNKNOWN MEDICATION [Concomitant]
  17. SPIRIVA [Concomitant]
  18. CIPRO [Concomitant]
  19. FLAGYL [Concomitant]
  20. PERCOCET [Concomitant]
     Indication: PAIN
  21. COLACE [Concomitant]
  22. MIRALAX [Concomitant]
     Indication: BOWEL MOVEMENT IRREGULARITY
     Route: 048

REACTIONS (27)
  - Fluid retention [Unknown]
  - Oedema [Recovering/Resolving]
  - Hyponatraemia [Unknown]
  - Abdominal pain lower [Unknown]
  - Diarrhoea [Unknown]
  - Hypomagnesaemia [Recovered/Resolved]
  - Constipation [Unknown]
  - Hypokalaemia [Recovered/Resolved]
  - Hypothyroidism [Unknown]
  - Hyperlipidaemia [Unknown]
  - Barrett^s oesophagus [Unknown]
  - Chronic respiratory failure [Unknown]
  - Colitis ischaemic [Recovering/Resolving]
  - Chronic obstructive pulmonary disease [Unknown]
  - Weight decreased [Unknown]
  - Off label use [Unknown]
  - Intentional product misuse [Unknown]
  - Drug dose omission [Unknown]
  - Chronic obstructive pulmonary disease [None]
  - Infectious colitis [None]
  - Blood glucose increased [None]
  - Platelet count increased [None]
  - Haemoglobin decreased [None]
  - Haematocrit decreased [None]
  - Bullous lung disease [None]
  - Pleural effusion [None]
  - Off label use [None]
